FAERS Safety Report 5312275-5 (Version None)
Quarter: 2007Q2

REPORT INFORMATION
  Report Type: 
  Country: None (occurrence: None)
  Receive Date: 20070430
  Receipt Date: 20070423
  Transmission Date: 20071010
  Serious: Yes (Other)
  Sender: FDA-Public Use
  Company Number: US-GENENTECH-240455

PATIENT
  Sex: Female
  Weight: 68.027 kg

DRUGS (23)
  1. AVASTIN [Suspect]
     Indication: BREAST CANCER METASTATIC
     Dosage: 5 MG/KG, QOW
     Route: 042
     Dates: start: 20060801
  2. AVASTIN [Suspect]
     Dosage: 10 MG/KG, UNK
     Route: 042
     Dates: start: 20061109
  3. ABRAXANE [Concomitant]
     Indication: BREAST CANCER METASTATIC
     Dosage: 125 MG/M2, UNK
     Route: 042
     Dates: start: 20051027
  4. ALOXI [Concomitant]
     Indication: BREAST CANCER METASTATIC
     Dosage: 0.025 MG, UNK
     Route: 042
     Dates: start: 20051027
  5. AREDIA [Concomitant]
     Indication: BREAST CANCER METASTATIC
     Dosage: 90 MG, 1/MONTH
     Route: 042
     Dates: start: 20051027
  6. XELODA [Concomitant]
     Indication: BREAST CANCER METASTATIC
     Dosage: 750 MG/M2, BID/M-F
     Route: 048
     Dates: start: 20051027
  7. CARBOPLATIN [Concomitant]
     Indication: BREAST CANCER METASTATIC
     Route: 042
     Dates: start: 20061109
  8. GEMZAR [Concomitant]
     Indication: BREAST CANCER METASTATIC
     Dosage: 750 MG/M2, DAYS1,8,15
     Route: 042
     Dates: start: 20060801
  9. TAXOTERE [Concomitant]
     Indication: DRUG USE FOR UNKNOWN INDICATION
     Dosage: 30 MG/M2, UNK
     Route: 042
     Dates: start: 20061109
  10. DECADRON [Concomitant]
     Indication: PREMEDICATION
     Dosage: 8 MG, UNK
     Route: 048
  11. DECADRON [Concomitant]
     Dosage: 10 MG, UNK
     Route: 042
  12. D5 .45NACL [Concomitant]
     Indication: DRUG USE FOR UNKNOWN INDICATION
  13. LASIX [Concomitant]
     Indication: DRUG USE FOR UNKNOWN INDICATION
     Dosage: 40 MG, QD
     Route: 048
  14. ALDACTONE [Concomitant]
     Indication: DRUG USE FOR UNKNOWN INDICATION
     Dosage: 50 MG, BID
     Route: 048
  15. NEUPOGEN [Concomitant]
     Indication: DRUG USE FOR UNKNOWN INDICATION
     Dosage: 480 MG, UNK
     Route: 058
  16. ROXICET [Concomitant]
     Indication: PAIN
     Dosage: 5 ML, PRN
  17. DIFLUCAN [Concomitant]
     Indication: DRUG USE FOR UNKNOWN INDICATION
     Dosage: 100 MG, QD
     Route: 048
  18. NYSTATIN [Concomitant]
     Indication: DRUG USE FOR UNKNOWN INDICATION
     Dosage: 1 TSP, QID
     Route: 048
  19. VALTREX [Concomitant]
     Indication: DRUG USE FOR UNKNOWN INDICATION
     Dosage: 500 MG, BID
     Route: 048
  20. MAGIC MOUTH WASH (INGREDIENTS UNK) [Concomitant]
     Indication: DRUG USE FOR UNKNOWN INDICATION
     Dosage: UNK, PRN
  21. POTASSIUM CHLORIDE [Concomitant]
     Indication: DRUG USE FOR UNKNOWN INDICATION
     Dosage: 20 MEQ, TID
     Route: 048
  22. ARANESP [Concomitant]
     Indication: DRUG USE FOR UNKNOWN INDICATION
     Dosage: 200 A?G, UNK
  23. TYLENOL [Concomitant]
     Indication: DRUG USE FOR UNKNOWN INDICATION
     Dosage: 1 G, UNK
     Route: 048

REACTIONS (1)
  - HEPATIC CIRRHOSIS [None]
